FAERS Safety Report 9497224 (Version 2)
Quarter: 2013Q4

REPORT INFORMATION
  Report Type: Report from Study
  Country: AU (occurrence: AU)
  Receive Date: 20130904
  Receipt Date: 20131024
  Transmission Date: 20140711
  Serious: Yes (Hospitalization, Other)
  Sender: FDA-Public Use
  Company Number: PHHY2013AU094025

PATIENT
  Age: 53 Year
  Sex: Female
  Weight: 60 kg

DRUGS (12)
  1. SIMULECT [Suspect]
     Indication: PROPHYLAXIS AGAINST TRANSPLANT REJECTION
     Dosage: 20 MG, PRE TRANSPLANT
     Route: 042
  2. SIMULECT [Suspect]
     Dosage: 20 MG, POST TRANSPLANT
     Route: 042
  3. TACROLIMUS [Concomitant]
     Indication: PROPHYLAXIS AGAINST TRANSPLANT REJECTION
     Dosage: UNK UKN, BID
     Route: 048
     Dates: start: 20100301
  4. MYCOPHENOLATE MOFETIL [Concomitant]
     Indication: PROPHYLAXIS AGAINST TRANSPLANT REJECTION
     Dosage: 720 MG, BID
     Route: 048
  5. MYCOPHENOLATE MOFETIL [Concomitant]
     Dosage: UNK UKN, BID
     Route: 048
     Dates: start: 20100301
  6. PREDNISOLONE [Concomitant]
     Indication: PROPHYLAXIS AGAINST TRANSPLANT REJECTION
     Dosage: 30 MG, QD
     Route: 048
  7. PREDNISOLONE [Concomitant]
     Dosage: 5 MG, QD
     Route: 048
     Dates: start: 20100301
  8. METHYLPREDNISOLONE [Concomitant]
     Indication: RENAL TRANSPLANT
  9. PRAVASTATIN [Concomitant]
     Indication: DYSLIPIDAEMIA
     Dosage: UNK UKN, QD
     Route: 048
     Dates: start: 20100301, end: 2011
  10. RESPRIM [Concomitant]
     Indication: ANTIFUNGAL PROPHYLAXIS
     Dosage: UNK
     Dates: start: 20100301, end: 2011
  11. VALGANCICLOVIR [Concomitant]
     Indication: ANTIVIRAL PROPHYLAXIS
     Dosage: 450 MG, QD FOR SIX MONTH
     Route: 048
  12. VALGANCICLOVIR [Concomitant]
     Dosage: UNK UKN, UNK
     Route: 048
     Dates: start: 20100301, end: 2011

REACTIONS (16)
  - Malacoplakia vesicae [Recovering/Resolving]
  - Klebsiella infection [Unknown]
  - Renal lymphocele [Recovered/Resolved]
  - Kidney transplant rejection [Recovered/Resolved]
  - Perinephric collection [Recovered/Resolved]
  - Escherichia infection [Recovered/Resolved]
  - Urinary tract infection [Recovered/Resolved with Sequelae]
  - Relapsing fever [Recovered/Resolved]
  - Morganella infection [Unknown]
  - Pseudomonas infection [Unknown]
  - Nephropathy toxic [Unknown]
  - Kidney fibrosis [Unknown]
  - Renal tubular atrophy [Unknown]
  - Diabetes mellitus [Recovered/Resolved]
  - Renal disorder [Unknown]
  - Oedema [Recovered/Resolved]
